FAERS Safety Report 14116334 (Version 1)
Quarter: 2017Q4

REPORT INFORMATION
  Report Type: Spontaneous
  Country: US (occurrence: US)
  Receive Date: 20171023
  Receipt Date: 20171023
  Transmission Date: 20180321
  Serious: Yes (Hospitalization, Other)
  Sender: FDA-Public Use
  Company Number: US-IMPAX LABORATORIES, INC-2017-IPXL-02930

PATIENT
  Age: 69 Year
  Sex: Female

DRUGS (6)
  1. METFORMIN HYDROCHLORIDE ER [Suspect]
     Active Substance: METFORMIN HYDROCHLORIDE
     Indication: HYPERGLYCAEMIA
     Dosage: 500 MG, 2 /DAY
     Route: 065
  2. TASELISIB. [Concomitant]
     Active Substance: TASELISIB
     Indication: BREAST CANCER STAGE IV
     Dosage: UNK UNK, DAILY
     Route: 065
  3. PACLITAXEL. [Concomitant]
     Active Substance: PACLITAXEL
     Indication: BREAST CANCER STAGE IV
     Dosage: UNK, 1 /WEEK
     Route: 065
  4. METFORMIN HYDROCHLORIDE ER [Suspect]
     Active Substance: METFORMIN HYDROCHLORIDE
     Dosage: 1000 MG, 2 /DAY
     Route: 065
  5. CANAGLIFLOZIN [Suspect]
     Active Substance: CANAGLIFLOZIN
     Indication: HYPERGLYCAEMIA
     Dosage: 100 MG, DAILY
     Route: 065
  6. DEXAMETHASONE. [Concomitant]
     Active Substance: DEXAMETHASONE
     Indication: BREAST CANCER STAGE IV
     Dosage: 8 MG, 1 /WEEK
     Route: 048

REACTIONS (3)
  - Nausea [Unknown]
  - Ketoacidosis [Recovered/Resolved]
  - Diarrhoea [Unknown]
